FAERS Safety Report 25483361 (Version 1)
Quarter: 2025Q2

REPORT INFORMATION
  Report Type: Spontaneous
  Country: FR (occurrence: FR)
  Receive Date: 20250626
  Receipt Date: 20250626
  Transmission Date: 20250717
  Serious: Yes (Hospitalization, Other)
  Sender: AUROBINDO
  Company Number: FR-AFSSAPS-NY2025000783

PATIENT
  Age: 19 Year
  Sex: Female
  Weight: 59.45 kg

DRUGS (5)
  1. METRONIDAZOLE [Suspect]
     Active Substance: METRONIDAZOLE
     Indication: Clostridium difficile colitis
     Route: 048
     Dates: start: 20241103, end: 20241113
  2. FOSFOMYCIN TROMETHAMINE [Suspect]
     Active Substance: FOSFOMYCIN TROMETHAMINE
     Indication: Cystitis
     Route: 048
     Dates: start: 202410, end: 202410
  3. FOSFOMYCIN TROMETHAMINE [Suspect]
     Active Substance: FOSFOMYCIN TROMETHAMINE
     Route: 048
     Dates: start: 20241112, end: 20241112
  4. SECNIDAZOLE [Suspect]
     Active Substance: SECNIDAZOLE
     Indication: Vulvovaginal mycotic infection
     Route: 048
     Dates: start: 20241030, end: 20241104
  5. Polygynax [Concomitant]
     Indication: Bacterial vaginosis
     Route: 067
     Dates: start: 20241030, end: 20241104

REACTIONS (2)
  - Agranulocytosis [Recovered/Resolved]
  - Product prescribing error [Recovered/Resolved]

NARRATIVE: CASE EVENT DATE: 20241031
